FAERS Safety Report 14481290 (Version 1)
Quarter: 2018Q1

REPORT INFORMATION
  Report Type: Spontaneous
  Country: US (occurrence: US)
  Receive Date: 20180201
  Receipt Date: 20180201
  Transmission Date: 20180509
  Serious: No
  Sender: FDA-Public Use
  Company Number: None

PATIENT
  Sex: Female
  Weight: 99.79 kg

DRUGS (2)
  1. STELARA [Suspect]
     Active Substance: USTEKINUMAB
  2. OTEZLA [Concomitant]
     Active Substance: APREMILAST

REACTIONS (1)
  - Upper respiratory tract infection [None]
